FAERS Safety Report 8916095 (Version 1)
Quarter: 2012Q4

REPORT INFORMATION
  Report Type: 
  Country: FR (occurrence: FR)
  Receive Date: 20121120
  Receipt Date: 20121120
  Transmission Date: 20130627
  Serious: Yes (Hospitalization)
  Sender: FDA-Public Use
  Company Number: FR-ABBOTT-12P-056-1008775-00

PATIENT
  Age: 19 Year
  Sex: Male

DRUGS (2)
  1. HUMIRA [Suspect]
     Indication: CROHN^S DISEASE
     Route: 058
     Dates: start: 201207, end: 201210
  2. FIVASA [Concomitant]
     Indication: CROHN^S DISEASE
     Dates: start: 201109

REACTIONS (2)
  - Drug ineffective [Recovering/Resolving]
  - Erythema nodosum [Recovering/Resolving]
